FAERS Safety Report 6332899-6 (Version None)
Quarter: 2009Q3

REPORT INFORMATION
  Report Type: 
  Country: None (occurrence: None)
  Receive Date: 20090828
  Receipt Date: 20090820
  Transmission Date: 20100115
  Serious: No
  Sender: FDA-Public Use
  Company Number: US-JNJFOC-20090808076

PATIENT
  Sex: Female
  Weight: 68.04 kg

DRUGS (6)
  1. DURAGESIC-100 [Suspect]
     Route: 062
  2. DURAGESIC-100 [Suspect]
     Route: 062
  3. DURAGESIC-100 [Suspect]
     Route: 062
  4. DURAGESIC-100 [Suspect]
     Indication: BONE PAIN
     Route: 062
  5. SOMA [Concomitant]
     Indication: MUSCLE SPASMS
     Route: 065
  6. PERCOCET [Concomitant]
     Indication: BREAKTHROUGH PAIN
     Route: 065

REACTIONS (5)
  - BONE PAIN [None]
  - DRUG INEFFECTIVE [None]
  - DYSGEUSIA [None]
  - INAPPROPRIATE SCHEDULE OF DRUG ADMINISTRATION [None]
  - WEIGHT DECREASED [None]
